FAERS Safety Report 9897154 (Version 1)
Quarter: 2014Q1

REPORT INFORMATION
  Report Type: Spontaneous
  Country: US (occurrence: US)
  Receive Date: 20140214
  Receipt Date: 20140214
  Transmission Date: 20141002
  Serious: Yes (Other)
  Sender: FDA-Public Use
  Company Number: US-BRISTOL-MYERS SQUIBB COMPANY-20132957

PATIENT
  Age: 72 Year
  Sex: Female
  Weight: 56.69 kg

DRUGS (4)
  1. COUMADIN [Suspect]
  2. ELIQUIS [Suspect]
  3. THYROID [Concomitant]
     Dosage: PILL
  4. CARVEDILOL [Concomitant]

REACTIONS (1)
  - Cataract [Unknown]
